FAERS Safety Report 4276115-8 (Version None)
Quarter: 2004Q1

REPORT INFORMATION
  Report Type: 
  Country: None (occurrence: None)
  Receive Date: 20040121
  Receipt Date: 20031002
  Transmission Date: 20041129
  Serious: No
  Sender: FDA-Public Use
  Company Number: US-GLAXOSMITHKLINE-A0428294A

PATIENT

DRUGS (1)
  1. VALTREX [Suspect]
     Dosage: 2G AS REQUIRED
     Route: 048

REACTIONS (2)
  - ABDOMINAL PAIN [None]
  - HEPATOMEGALY [None]
